FAERS Safety Report 9197614 (Version 1)
Quarter: 2013Q1

REPORT INFORMATION
  Report Type: Spontaneous
  Country: US (occurrence: US)
  Receive Date: 20130328
  Receipt Date: 20130328
  Transmission Date: 20140127
  Serious: Yes (Hospitalization)
  Sender: FDA-Public Use
  Company Number: US-BAYER-2013-035400

PATIENT
  Age: 35 Year
  Sex: Female

DRUGS (7)
  1. YASMIN [Suspect]
  2. CLARITIN [Concomitant]
  3. NEXIUM [Concomitant]
  4. ZITHROMAX [Concomitant]
  5. XANAX [Concomitant]
  6. LEVAQUIN [Concomitant]
  7. ULTRAM [Concomitant]

REACTIONS (3)
  - Pulmonary embolism [None]
  - Cholelithiasis [None]
  - Deep vein thrombosis [None]
